FAERS Safety Report 25342339 (Version 3)
Quarter: 2025Q3

REPORT INFORMATION
  Report Type: Spontaneous
  Country: US (occurrence: US)
  Receive Date: 20250521
  Receipt Date: 20250820
  Transmission Date: 20251020
  Serious: No
  Sender: CATALYST PHARMA
  Company Number: US-CATALYST PHARMACEUTICALS-US-CATA-25-00155

PATIENT
  Age: 3 Year
  Sex: Male
  Weight: 15.197 kg

DRUGS (4)
  1. AGAMREE [Suspect]
     Active Substance: VAMOROLONE
     Indication: Duchenne muscular dystrophy
     Dosage: 2 ML DAILY
     Route: 048
     Dates: start: 20241022
  2. VITAMIN D3 [Concomitant]
     Active Substance: CHOLECALCIFEROL
     Indication: Bone disorder
     Dosage: 10 MCG/ML 2 DROPS DAILY
     Route: 048
  3. SMARTY PANTS KIDS PROBIOTIC [Concomitant]
     Indication: Gastrointestinal disorder
     Dosage: 2 G DAILY
     Route: 048
  4. VITAMIN C GUMMIES [Concomitant]
     Indication: Hypovitaminosis
     Dosage: 3.6 G DAILY
     Route: 048

REACTIONS (2)
  - Rash [Recovered/Resolved]
  - Cough [Recovered/Resolved]

NARRATIVE: CASE EVENT DATE: 20241101
